FAERS Safety Report 8996753 (Version 1)
Quarter: 2012Q4

REPORT INFORMATION
  Report Type: Spontaneous
  Country: US (occurrence: None)
  Receive Date: 20121228
  Receipt Date: 20121228
  Transmission Date: 20130627
  Serious: Yes (Disabling)
  Sender: FDA-Public Use
  Company Number: None

PATIENT
  Sex: Male
  Weight: 79.38 kg

DRUGS (2)
  1. LIPITOR [Suspect]
     Indication: BLOOD CHOLESTEROL
     Dates: start: 20050114, end: 20070606
  2. LIPITOR [Suspect]
     Indication: BLOOD CHOLESTEROL
     Dates: start: 20070606, end: 20100805

REACTIONS (4)
  - Fall [None]
  - Muscular weakness [None]
  - Gait disturbance [None]
  - Gait disturbance [None]
